FAERS Safety Report 6986942-1 (Version None)
Quarter: 2010Q3

REPORT INFORMATION
  Report Type: 
  Country: None (occurrence: None)
  Receive Date: 20100916
  Receipt Date: 20100901
  Transmission Date: 20110219
  Serious: Yes (Life-Threatening, Hospitalization)
  Sender: FDA-Public Use
  Company Number: AU-BIOGENIDEC-2010BI030488

PATIENT
  Age: 30 Year
  Sex: Female

DRUGS (5)
  1. TYSABRI [Suspect]
     Indication: RELAPSING-REMITTING MULTIPLE SCLEROSIS
     Route: 042
     Dates: start: 20090305
  2. OXYCODONE [Concomitant]
     Dates: start: 20100709
  3. DIAZEPAM [Concomitant]
     Dates: start: 20100709
  4. DURAMINE [Concomitant]
     Dates: start: 20100709
  5. ALCOHOL [Concomitant]
     Dates: start: 20100709

REACTIONS (4)
  - ACUTE STRESS DISORDER [None]
  - AGITATION [None]
  - ALCOHOL USE [None]
  - MULTIPLE DRUG OVERDOSE [None]
